FAERS Safety Report 11889134 (Version 1)
Quarter: 2016Q1

REPORT INFORMATION
  Report Type: Spontaneous
  Country: US (occurrence: None)
  Receive Date: 20160104
  Receipt Date: 20160104
  Transmission Date: 20160526
  Serious: No
  Sender: FDA-Public Use
  Company Number: None

PATIENT
  Age: 68 Year
  Sex: Male
  Weight: 77.11 kg

DRUGS (2)
  1. LEVOTHYROXINE. [Concomitant]
     Active Substance: LEVOTHYROXINE
  2. LISINOPRIL. [Suspect]
     Active Substance: LISINOPRIL
     Indication: HYPERTENSION
     Route: 048
     Dates: start: 20150810, end: 20160101

REACTIONS (14)
  - Dizziness [None]
  - Pyrexia [None]
  - Sneezing [None]
  - Upper-airway cough syndrome [None]
  - Dysphagia [None]
  - Musculoskeletal stiffness [None]
  - Burning sensation [None]
  - Tinnitus [None]
  - Gingival bleeding [None]
  - Headache [None]
  - Rhinorrhoea [None]
  - Throat irritation [None]
  - Productive cough [None]
  - Haemorrhage [None]

NARRATIVE: CASE EVENT DATE: 20160101
